FAERS Safety Report 7501954-7 (Version None)
Quarter: 2011Q2

REPORT INFORMATION
  Report Type: 
  Country: None (occurrence: None)
  Receive Date: 20110525
  Receipt Date: 20110520
  Transmission Date: 20111010
  Serious: No
  Sender: FDA-Public Use
  Company Number: US-PFIZER INC-2011110014

PATIENT
  Sex: Female

DRUGS (2)
  1. CELEXA [Concomitant]
     Dosage: UNK
  2. PRISTIQ [Suspect]
     Dosage: 50 MG, UNK

REACTIONS (3)
  - WRONG TECHNIQUE IN DRUG USAGE PROCESS [None]
  - BRUXISM [None]
  - DIZZINESS [None]
